FAERS Safety Report 13055106 (Version 3)
Quarter: 2017Q1

REPORT INFORMATION
  Report Type: Spontaneous
  Country: US (occurrence: US)
  Receive Date: 20161222
  Receipt Date: 20170322
  Transmission Date: 20170428
  Serious: No
  Sender: FDA-Public Use
  Company Number: US-PFIZER INC-2016593585

PATIENT
  Age: 13 Year
  Sex: Female
  Weight: 44 kg

DRUGS (1)
  1. GENOTROPIN [Suspect]
     Active Substance: SOMATROPIN
     Indication: GROWTH HORMONE DEFICIENCY
     Dosage: 1.6 MG, DAILY
     Route: 058
     Dates: start: 201402, end: 20170314

REACTIONS (2)
  - Injection site pain [Unknown]
  - Product quality issue [Unknown]
